FAERS Safety Report 8189660-X (Version None)
Quarter: 2012Q1

REPORT INFORMATION
  Report Type: 
  Country: None (occurrence: None)
  Receive Date: 20120221
  Receipt Date: 20120106
  Transmission Date: 20120608
  Serious: No
  Sender: FDA-Public Use
  Company Number: 049602

PATIENT
  Sex: Male
  Weight: 104.3 kg

DRUGS (3)
  1. LACOSAMIDE [Suspect]
     Indication: CONVULSION
     Dosage: (100 MG BID ORAL)
     Route: 048
     Dates: start: 20110101
  2. METHYLENEDIOXYMETHAMPHETAMINE [Concomitant]
  3. KEPPRA [Suspect]
     Indication: CONVULSION
     Dosage: (500 MG TID ORAL)
     Route: 048
     Dates: start: 20110101

REACTIONS (5)
  - MOOD ALTERED [None]
  - HOSTILITY [None]
  - IRRITABILITY [None]
  - AGGRESSION [None]
  - RASH GENERALISED [None]
